FAERS Safety Report 17660548 (Version 1)
Quarter: 2020Q2

REPORT INFORMATION
  Report Type: Spontaneous
  Country: CA (occurrence: CA)
  Receive Date: 20200413
  Receipt Date: 20200413
  Transmission Date: 20200713
  Serious: Yes (Disabling)
  Sender: FDA-Public Use
  Company Number: CA-TEVA-2020-CA-1221137

PATIENT
  Age: 15 Year
  Sex: Female
  Weight: 48 kg

DRUGS (13)
  1. VINORELBINE TARTRATE. [Concomitant]
     Active Substance: VINORELBINE TARTRATE
  2. METHYLPREDNISOLONE. [Concomitant]
     Active Substance: METHYLPREDNISOLONE
  3. CYCLOPHOSPHAMIDE. [Concomitant]
     Active Substance: CYCLOPHOSPHAMIDE
  4. VINCRISTINE SULFATE. [Suspect]
     Active Substance: VINCRISTINE SULFATE
     Indication: HODGKIN^S DISEASE
     Route: 042
  5. DEXAMETHASONE. [Concomitant]
     Active Substance: DEXAMETHASONE
  6. ADCETRIS [Suspect]
     Active Substance: BRENTUXIMAB VEDOTIN
     Indication: HODGKIN^S DISEASE
     Route: 042
  7. BUSULFAN. [Concomitant]
     Active Substance: BUSULFAN
  8. GEMCITABINE. [Concomitant]
     Active Substance: GEMCITABINE
  9. BLEOMYCIN SULFATE [Concomitant]
     Active Substance: BLEOMYCIN SULFATE
  10. ETOPOSIDE. [Concomitant]
     Active Substance: ETOPOSIDE
  11. MELPHALAN. [Concomitant]
     Active Substance: MELPHALAN
  12. PREDNISONE. [Concomitant]
     Active Substance: PREDNISONE
  13. DOXORUBICIN [Concomitant]
     Active Substance: DOXORUBICIN

REACTIONS (9)
  - Motor dysfunction [Recovered/Resolved]
  - Neuropathy peripheral [Recovered/Resolved]
  - Neurotoxicity [Recovered/Resolved]
  - Mobility decreased [Recovered/Resolved]
  - Tremor [Recovered/Resolved]
  - Asthenia [Recovered/Resolved]
  - Dysgraphia [Recovered/Resolved]
  - Hypoaesthesia [Recovered/Resolved]
  - Paraesthesia [Recovered/Resolved]
